FAERS Safety Report 23338580 (Version 1)
Quarter: 2023Q4

REPORT INFORMATION
  Report Type: Spontaneous
  Country: IT (occurrence: IT)
  Receive Date: 20231226
  Receipt Date: 20231226
  Transmission Date: 20240110
  Serious: Yes (Other)
  Sender: FDA-Public Use
  Company Number: None

PATIENT
  Age: 58 Year
  Sex: Female

DRUGS (3)
  1. CETUXIMAB [Suspect]
     Active Substance: CETUXIMAB
     Indication: Head and neck cancer
     Dosage: 400 MG, UNKNOWN
     Route: 042
     Dates: start: 20231006
  2. CAPECITABINE [Suspect]
     Active Substance: CAPECITABINE
     Indication: Head and neck cancer
     Dosage: 2500 G, UNK
     Route: 048
     Dates: start: 20231006, end: 20231006
  3. CARBOPLATIN [Suspect]
     Active Substance: CARBOPLATIN
     Indication: Head and neck cancer
     Dosage: 380 MG, UNKNOWN
     Route: 042
     Dates: start: 20231006, end: 20231006

REACTIONS (2)
  - Thrombocytopenia [Unknown]
  - Off label use [Unknown]

NARRATIVE: CASE EVENT DATE: 20231020
